FAERS Safety Report 17503745 (Version 3)
Quarter: 2020Q4

REPORT INFORMATION
  Report Type: Spontaneous
  Country: JP (occurrence: JP)
  Receive Date: 20200305
  Receipt Date: 20201211
  Transmission Date: 20210113
  Serious: Yes (Hospitalization, Other)
  Sender: FDA-Public Use
  Company Number: JP-LUNDBECK-DKLU3013327

PATIENT
  Age: 27 Year
  Sex: Female

DRUGS (11)
  1. PREDNISOLONE. [Concomitant]
     Active Substance: PREDNISOLONE
     Indication: PRODUCT USED FOR UNKNOWN INDICATION
     Route: 065
  2. E KEPPRA [Concomitant]
     Active Substance: LEVETIRACETAM
     Indication: PRODUCT USED FOR UNKNOWN INDICATION
     Route: 065
  3. MIDAZOLAM. [Concomitant]
     Active Substance: MIDAZOLAM
     Indication: PRODUCT USED FOR UNKNOWN INDICATION
     Route: 065
  4. DIAZEPAM. [Concomitant]
     Active Substance: DIAZEPAM
     Indication: PRODUCT USED FOR UNKNOWN INDICATION
     Route: 065
  5. VALPROATE SODIUM. [Suspect]
     Active Substance: VALPROATE SODIUM
     Indication: PRODUCT USED FOR UNKNOWN INDICATION
     Route: 048
  6. LANDSEN [Suspect]
     Active Substance: CLONAZEPAM
     Indication: PRODUCT USED FOR UNKNOWN INDICATION
     Route: 048
  7. CARBAMAZEPINE. [Suspect]
     Active Substance: CARBAMAZEPINE
     Indication: PRODUCT USED FOR UNKNOWN INDICATION
     Route: 065
  8. ACICLOVIR [Concomitant]
     Active Substance: ACYCLOVIR
     Indication: PRODUCT USED FOR UNKNOWN INDICATION
     Route: 065
  9. CLOBAZAM. [Suspect]
     Active Substance: CLOBAZAM
     Indication: PRODUCT USED FOR UNKNOWN INDICATION
     Route: 048
  10. THIAMYLAL [Concomitant]
     Active Substance: THIAMYLAL
     Indication: PRODUCT USED FOR UNKNOWN INDICATION
     Route: 065
  11. CLOBAZAM. [Suspect]
     Active Substance: CLOBAZAM
     Route: 048

REACTIONS (3)
  - Drug eruption [Unknown]
  - Ammonia increased [Unknown]
  - Agranulocytosis [Unknown]
